FAERS Safety Report 7437052-0 (Version None)
Quarter: 2011Q2

REPORT INFORMATION
  Report Type: 
  Country: None (occurrence: None)
  Receive Date: 20110426
  Receipt Date: 20110413
  Transmission Date: 20111010
  Serious: Yes (Hospitalization)
  Sender: FDA-Public Use
  Company Number: US-SANOFI-AVENTIS-2011SA024541

PATIENT
  Age: 51 Year
  Sex: Male

DRUGS (6)
  1. ANTINEOPLASTIC AGENTS [Suspect]
     Indication: GASTRIC CANCER
     Route: 048
     Dates: start: 20101117, end: 20101221
  2. IRINOTECAN HCL [Suspect]
     Indication: GASTRIC CANCER
     Route: 065
  3. LEUCOVORIN CALCIUM [Suspect]
     Indication: GASTRIC CANCER
     Route: 042
     Dates: start: 20101117
  4. OXALIPLATIN [Suspect]
     Indication: GASTRIC CANCER
     Route: 042
     Dates: start: 20101117
  5. LOVENOX [Suspect]
     Indication: PULMONARY EMBOLISM
     Route: 058
  6. FLUOROURACIL [Suspect]
     Indication: GASTRIC CANCER
     Dosage: 2400 MG/M2 2 X PER 1 CYCLICAL
     Route: 042
     Dates: start: 20101117

REACTIONS (8)
  - DYSPNOEA [None]
  - FATIGUE [None]
  - HAEMOGLOBIN DECREASED [None]
  - WHITE BLOOD CELL COUNT DECREASED [None]
  - LYMPHOCYTE COUNT DECREASED [None]
  - THROMBOSIS [None]
  - OESOPHAGEAL HAEMORRHAGE [None]
  - NEUTROPHIL COUNT DECREASED [None]
